FAERS Safety Report 10748436 (Version 2)
Quarter: 2015Q4

REPORT INFORMATION
  Report Type: Spontaneous
  Country: US (occurrence: US)
  Receive Date: 20150129
  Receipt Date: 20151210
  Transmission Date: 20160304
  Serious: Yes (Life-Threatening, Hospitalization)
  Sender: FDA-Public Use
  Company Number: US-BAYER-2015-009839

PATIENT
  Age: 26 Year
  Sex: Female

DRUGS (1)
  1. MIRENA [Suspect]
     Active Substance: LEVONORGESTREL
     Indication: CONTRACEPTION
     Dosage: 20 MCG/24HR, CONT
     Route: 015
     Dates: start: 201110, end: 201111

REACTIONS (13)
  - Injury [None]
  - Hormone level abnormal [None]
  - Anhedonia [None]
  - Device defective [None]
  - Genital haemorrhage [None]
  - Thinking abnormal [None]
  - Pain [None]
  - Anxiety [None]
  - Feeling abnormal [None]
  - General physical health deterioration [None]
  - Emotional distress [None]
  - Device issue [None]
  - Uterine disorder [None]

NARRATIVE: CASE EVENT DATE: 201110
